FAERS Safety Report 10731374 (Version 1)
Quarter: 2015Q1

REPORT INFORMATION
  Report Type: Spontaneous
  Country: FR (occurrence: FR)
  Receive Date: 20150122
  Receipt Date: 20150122
  Transmission Date: 20150721
  Serious: Yes (Hospitalization)
  Sender: FDA-Public Use
  Company Number: FR-BRISTOL-MYERS SQUIBB COMPANY-BMS-2015-002775

PATIENT
  Age: 45 Year
  Sex: Male

DRUGS (7)
  1. COVERSYL                           /00790702/ [Concomitant]
     Active Substance: PERINDOPRIL
  2. COUMADINE [Suspect]
     Active Substance: WARFARIN SODIUM
     Indication: CEREBROVASCULAR ACCIDENT
     Dosage: 7 MG, QD
     Route: 048
  3. TAHOR [Concomitant]
     Active Substance: ATORVASTATIN CALCIUM
  4. AMLOR [Concomitant]
     Active Substance: AMLODIPINE BESYLATE
  5. INEXIUM                            /01479302/ [Concomitant]
     Active Substance: ESOMEPRAZOLE MAGNESIUM
  6. KARDEGIC [Suspect]
     Active Substance: ASPIRIN LYSINE
     Indication: PRODUCT USED FOR UNKNOWN INDICATION
     Dosage: 1 DF, QD
     Route: 048
  7. AUGMENTIN [Concomitant]
     Active Substance: AMOXICILLIN\CLAVULANATE POTASSIUM
     Indication: CEREBROVASCULAR ACCIDENT
     Route: 048

REACTIONS (2)
  - Abscess limb [Unknown]
  - Haematoma [Recovering/Resolving]

NARRATIVE: CASE EVENT DATE: 20141112
